FAERS Safety Report 6523270-2 (Version None)
Quarter: 2009Q4

REPORT INFORMATION
  Report Type: 
  Country: None (occurrence: None)
  Receive Date: 20091231
  Receipt Date: 20091221
  Transmission Date: 20100525
  Serious: Yes (Death, Hospitalization)
  Sender: FDA-Public Use
  Company Number: FR-JNJFOC-20060503548

PATIENT
  Age: 83 Year
  Sex: Female
  Weight: 83 kg

DRUGS (4)
  1. INFLIXIMAB [Suspect]
     Route: 042
  2. INFLIXIMAB [Suspect]
     Route: 042
  3. INFLIXIMAB [Suspect]
     Indication: CROHN'S DISEASE
     Route: 042
  4. RIVASTIGMINE [Concomitant]

REACTIONS (4)
  - CEREBRAL ATROPHY [None]
  - DEATH [None]
  - ISCHAEMIC STROKE [None]
  - NEPHRITIS [None]
